FAERS Safety Report 23125405 (Version 1)
Quarter: 2023Q4

REPORT INFORMATION
  Report Type: Other
  Country: EG (occurrence: EG)
  Receive Date: 20231030
  Receipt Date: 20231030
  Transmission Date: 20240109
  Serious: Yes (Other)
  Sender: FDA-Public Use
  Company Number: EG-002147023-NVSC2023EG226841

PATIENT
  Age: 74 Year
  Sex: Female

DRUGS (4)
  1. LUCENTIS [Suspect]
     Active Substance: RANIBIZUMAB
     Indication: Retinal vein occlusion
     Dosage: START AND STOP FROM 6 YEARS AGO ON RIGHT EYE
     Route: 050
     Dates: start: 2017, end: 2017
  2. LUCENTIS [Suspect]
     Active Substance: RANIBIZUMAB
     Dosage: IN THE LEFT EYE
     Route: 050
     Dates: start: 20230920, end: 20230920
  3. NEBIVOLOL HYDROCHLORIDE [Concomitant]
     Active Substance: NEBIVOLOL HYDROCHLORIDE
     Indication: Hypertension
     Dosage: 1 DOSAGE FORM, QD (5/12.5 MG) (6 YEARS AGO + 3 DAYS AGO)
  4. NEBIVOLOL HYDROCHLORIDE [Concomitant]
     Active Substance: NEBIVOLOL HYDROCHLORIDE
     Dosage: 1 DOSAGE FORM, QD (5/25 MG) (SINCE 3 DAYS TO ONGOING)

REACTIONS (3)
  - Macular oedema [Recovered/Resolved]
  - Macular oedema [Unknown]
  - Eye haemorrhage [Recovered/Resolved]

NARRATIVE: CASE EVENT DATE: 20170101
